FAERS Safety Report 10567726 (Version 1)
Quarter: 2014Q4

REPORT INFORMATION
  Report Type: Spontaneous
  Country: GB (occurrence: GB)
  Receive Date: 20141106
  Receipt Date: 20141106
  Transmission Date: 20150529
  Serious: Yes (Other)
  Sender: FDA-Public Use
  Company Number: GB-AUROBINDO-AUR-APL-2014-11639

PATIENT
  Age: 53 Year
  Sex: Female

DRUGS (2)
  1. SERTRALINE FILM-COATED TABLETS 100MG [Suspect]
     Active Substance: SERTRALINE HYDROCHLORIDE
     Dosage: 150 MG, UNK
     Route: 048
     Dates: start: 20140923
  2. SERTRALINE FILM-COATED TABLETS 100MG [Suspect]
     Active Substance: SERTRALINE HYDROCHLORIDE
     Indication: PRODUCT USED FOR UNKNOWN INDICATION
     Dosage: 100 MG, UNK
     Route: 048
     Dates: start: 2012

REACTIONS (8)
  - Disorientation [Unknown]
  - Pruritus [Unknown]
  - Activities of daily living impaired [Unknown]
  - Dysphemia [Unknown]
  - Alopecia [Unknown]
  - Rash [Not Recovered/Not Resolved]
  - Dysarthria [Unknown]
  - Feeling abnormal [Unknown]

NARRATIVE: CASE EVENT DATE: 2012
